FAERS Safety Report 23833770 (Version 9)
Quarter: 2024Q4

REPORT INFORMATION
  Report Type: Spontaneous
  Country: US (occurrence: US)
  Receive Date: 20240509
  Receipt Date: 20241130
  Transmission Date: 20250115
  Serious: No
  Sender: UNITED THERAPEUTICS
  Company Number: US-UNITED THERAPEUTICS-UNT-2024-006473

PATIENT
  Sex: Male
  Weight: 99.773 kg

DRUGS (45)
  1. ORENITRAM [Suspect]
     Active Substance: TREPROSTINIL
     Indication: Pulmonary arterial hypertension
     Dosage: 0.125 MG, TID
     Dates: start: 202402, end: 2024
  2. ORENITRAM [Suspect]
     Active Substance: TREPROSTINIL
     Dosage: 0.25 MG, TID
     Dates: start: 2024, end: 2024
  3. ORENITRAM [Suspect]
     Active Substance: TREPROSTINIL
     Dosage: 0.5 MG, TID
     Dates: start: 2024, end: 2024
  4. ORENITRAM [Suspect]
     Active Substance: TREPROSTINIL
     Dosage: 6.125 MG, TID
     Dates: start: 2024, end: 2024
  5. ORENITRAM [Suspect]
     Active Substance: TREPROSTINIL
     Dosage: 1.125 MG (1 TABLET OF 1 MG AND 0.125 MG EACH), TID
     Dates: start: 2024, end: 2024
  6. ORENITRAM [Suspect]
     Active Substance: TREPROSTINIL
     Dosage: 0.375 MG, TID
     Dates: start: 2024, end: 2024
  7. ORENITRAM [Suspect]
     Active Substance: TREPROSTINIL
     Dosage: 1.5 MG, TID
     Dates: start: 20240515, end: 2024
  8. ORENITRAM [Suspect]
     Active Substance: TREPROSTINIL
     Dosage: 2 MG, TID
     Dates: start: 2024, end: 2024
  9. ORENITRAM [Suspect]
     Active Substance: TREPROSTINIL
     Dosage: 2.5 MG, TID
     Dates: start: 2024, end: 2024
  10. ORENITRAM [Suspect]
     Active Substance: TREPROSTINIL
     Dosage: 2.75 MG, TID
     Dates: start: 2024, end: 2024
  11. ORENITRAM [Suspect]
     Active Substance: TREPROSTINIL
     Dosage: 2.875 MG, TID
     Dates: start: 2024, end: 2024
  12. ORENITRAM [Suspect]
     Active Substance: TREPROSTINIL
     Dosage: 3.5 MG, TID
     Dates: start: 2024, end: 202409
  13. ORENITRAM [Suspect]
     Active Substance: TREPROSTINIL
     Dosage: 3.75 MG, TID
     Dates: start: 202409, end: 20240925
  14. ORENITRAM [Suspect]
     Active Substance: TREPROSTINIL
     Dosage: 3.875 MG, TID
     Dates: start: 20240925, end: 20241001
  15. ORENITRAM [Suspect]
     Active Substance: TREPROSTINIL
     Dosage: 3.75 MG, TID
     Dates: start: 20241001, end: 2024
  16. ORENITRAM [Suspect]
     Active Substance: TREPROSTINIL
     Dosage: 3 MG, Q8H
     Dates: start: 2024
  17. ORENITRAM [Suspect]
     Active Substance: TREPROSTINIL
     Dosage: UNK
  18. ORENITRAM [Suspect]
     Active Substance: TREPROSTINIL
     Indication: Pulmonary arterial hypertension
     Dosage: UNK
  19. ORENITRAM [Suspect]
     Active Substance: TREPROSTINIL
     Indication: Pulmonary arterial hypertension
     Dosage: UNK
  20. ORENITRAM [Suspect]
     Active Substance: TREPROSTINIL
     Indication: Pulmonary arterial hypertension
     Dosage: UNK
  21. ORENITRAM [Suspect]
     Active Substance: TREPROSTINIL
     Indication: Pulmonary arterial hypertension
     Dosage: UNK
  22. ORENITRAM [Suspect]
     Active Substance: TREPROSTINIL
     Indication: Pulmonary arterial hypertension
     Dosage: UNK
  23. OFEV [Suspect]
     Active Substance: NINTEDANIB
     Indication: Idiopathic pulmonary fibrosis
     Dosage: 200 MG, DAILY
  24. OFEV [Suspect]
     Active Substance: NINTEDANIB
     Dosage: UNK
  25. OFEV [Suspect]
     Active Substance: NINTEDANIB
     Dosage: 150 MG, Q12H
     Dates: start: 20240226
  26. OFEV [Suspect]
     Active Substance: NINTEDANIB
     Dosage: UNK, QD
  27. OFEV [Suspect]
     Active Substance: NINTEDANIB
     Dosage: UNK
  28. OFEV [Suspect]
     Active Substance: NINTEDANIB
     Dosage: UNK
  29. OPSUMIT [Suspect]
     Active Substance: MACITENTAN
     Indication: Product used for unknown indication
     Dosage: UNK
  30. TYLENOL EXTRA STRENGTH [Concomitant]
     Active Substance: ACETAMINOPHEN
     Indication: Headache
     Dosage: UNK
  31. LEFLUNOMIDE [Concomitant]
     Active Substance: LEFLUNOMIDE
     Indication: Product used for unknown indication
     Dosage: UNK
  32. TETRAHYDROZOLINE HYDROCHLORIDE [Concomitant]
     Active Substance: TETRAHYDROZOLINE HYDROCHLORIDE
     Indication: Product used for unknown indication
     Dosage: UNK
  33. ARANESP [Concomitant]
     Active Substance: DARBEPOETIN ALFA
     Indication: Product used for unknown indication
     Dosage: UNK
  34. PRAVASTATIN SODIUM [Concomitant]
     Active Substance: PRAVASTATIN SODIUM
     Indication: Product used for unknown indication
     Dosage: UNK
  35. FLONASE ALLERGY RELIEF [Concomitant]
     Active Substance: FLUTICASONE PROPIONATE
     Indication: Product used for unknown indication
     Dosage: UNK
  36. VITAMIN D2 [Concomitant]
     Active Substance: ERGOCALCIFEROL
     Indication: Product used for unknown indication
     Dosage: UNK
  37. HYDROXYCHLOROQUINE SULFATE [Concomitant]
     Active Substance: HYDROXYCHLOROQUINE SULFATE
     Indication: Product used for unknown indication
     Dosage: UNK
  38. ACTEMRA [Concomitant]
     Active Substance: TOCILIZUMAB
     Indication: Product used for unknown indication
     Dosage: UNK
  39. OXYGEN [Concomitant]
     Active Substance: OXYGEN
     Indication: Product used for unknown indication
     Dosage: UNK
  40. MINERALS\VITAMINS [Concomitant]
     Active Substance: MINERALS\VITAMINS
     Indication: Product used for unknown indication
     Dosage: UNK
  41. ERYTHROMYCIN ETHYLSUCCINATE [Concomitant]
     Active Substance: ERYTHROMYCIN ETHYLSUCCINATE
     Indication: Product used for unknown indication
     Dosage: UNK
  42. NITROGLYCERIN [Concomitant]
     Active Substance: NITROGLYCERIN
     Indication: Product used for unknown indication
     Dosage: UNK
  43. LOSARTAN POTASSIUM [Concomitant]
     Active Substance: LOSARTAN POTASSIUM
     Indication: Product used for unknown indication
     Dosage: UNK
  44. ASPIRIN [Concomitant]
     Active Substance: ASPIRIN
     Indication: Product used for unknown indication
     Dosage: UNK
  45. IMODIUM A-D [Concomitant]
     Active Substance: LOPERAMIDE HYDROCHLORIDE
     Indication: Diarrhoea
     Dosage: UNK

REACTIONS (17)
  - Diarrhoea [Unknown]
  - Gastrooesophageal reflux disease [Unknown]
  - Renal function test abnormal [Recovering/Resolving]
  - Seasonal allergy [Not Recovered/Not Resolved]
  - Headache [Unknown]
  - Condition aggravated [Unknown]
  - Dyspnoea exertional [Unknown]
  - Fatigue [Unknown]
  - Flatulence [Unknown]
  - Abdominal distension [Unknown]
  - Dyspnoea [Unknown]
  - Erythema [Unknown]
  - Sinus disorder [Unknown]
  - Rhinorrhoea [Unknown]
  - Lacrimation increased [Unknown]
  - Flushing [Unknown]
  - Drug ineffective [Unknown]

NARRATIVE: CASE EVENT DATE: 20240101
